FAERS Safety Report 7841946-1 (Version None)
Quarter: 2011Q4

REPORT INFORMATION
  Report Type: 
  Country: None (occurrence: None)
  Receive Date: 20111025
  Receipt Date: 20111021
  Transmission Date: 20120403
  Serious: Yes (Death, Other)
  Sender: FDA-Public Use
  Company Number: PHFR2011IE01639

PATIENT
  Sex: Male

DRUGS (6)
  1. CLOZARIL [Suspect]
     Indication: SCHIZOPHRENIA
     Dosage: 350 MG, BID
     Route: 048
     Dates: start: 20040719, end: 20100701
  2. CLOZARIL [Suspect]
     Dosage: 325 MG, MANE AND 350 MG, NOCTE
     Route: 048
     Dates: start: 20100722
  3. VALPROATE SODIUM [Concomitant]
     Indication: MOOD ALTERED
     Dosage: 500 MG, TID
     Dates: start: 20050101
  4. AMISULPRIDE [Suspect]
     Indication: SCHIZOAFFECTIVE DISORDER
     Dosage: 400 MG, DAILY AND 200 MG, NOCTE
     Dates: start: 20050101
  5. NITRAZEPAM [Concomitant]
     Dosage: 10 MG, NOCTE
     Dates: start: 20080101
  6. VENLAFAXINE [Concomitant]
     Indication: DEPRESSION
     Dosage: 150 MG, NOCTE AND 37.5 MG, DAILY
     Dates: start: 20080101

REACTIONS (19)
  - BRONCHIAL DISORDER [None]
  - NAIL DISCOLOURATION [None]
  - PNEUMONIA [None]
  - MYOCARDIAL FIBROSIS [None]
  - CYANOSIS [None]
  - CELL DEATH [None]
  - PULMONARY OEDEMA [None]
  - ASPIRATION [None]
  - BRONCHITIS [None]
  - LEFT VENTRICULAR HYPERTROPHY [None]
  - TRACHEAL DISORDER [None]
  - RESPIRATORY DISORDER [None]
  - HEPATIC STEATOSIS [None]
  - VOMITING [None]
  - ARRHYTHMIA [None]
  - SKIN DISCOLOURATION [None]
  - SKIN DISORDER [None]
  - BACTERIAL INFECTION [None]
  - CONNECTIVE TISSUE DISORDER [None]
